FAERS Safety Report 16885865 (Version 1)
Quarter: 2019Q4

REPORT INFORMATION
  Report Type: Spontaneous
  Country: US (occurrence: US)
  Receive Date: 20191003
  Receipt Date: 20191003
  Transmission Date: 20200122
  Serious: Yes (Death)
  Sender: FDA-Public Use
  Company Number: None

PATIENT
  Age: 32 Year
  Sex: Female
  Weight: 158.8 kg

DRUGS (1)
  1. OCREVUS [Suspect]
     Active Substance: OCRELIZUMAB
     Indication: MULTIPLE SCLEROSIS
     Route: 041
     Dates: end: 20181102

REACTIONS (4)
  - Maternal exposure during pregnancy [None]
  - Umbilical cord abnormality [None]
  - Foetal exposure during pregnancy [None]
  - Pregnancy [None]

NARRATIVE: CASE EVENT DATE: 20190731
